FAERS Safety Report 12077689 (Version 1)
Quarter: 2016Q1

REPORT INFORMATION
  Report Type: Spontaneous
  Country: US (occurrence: US)
  Receive Date: 20160215
  Receipt Date: 20160215
  Transmission Date: 20160526
  Serious: No
  Sender: FDA-Public Use
  Company Number: US-BIOGEN-2014BI001025

PATIENT
  Sex: Female

DRUGS (2)
  1. AVONEX [Suspect]
     Active Substance: INTERFERON BETA-1A
     Indication: MULTIPLE SCLEROSIS
     Route: 030
     Dates: start: 20000621
  2. AVONEX [Suspect]
     Active Substance: INTERFERON BETA-1A
     Route: 030
     Dates: start: 20020701

REACTIONS (11)
  - General symptom [Not Recovered/Not Resolved]
  - Multiple allergies [Unknown]
  - Multiple sclerosis relapse [Recovered/Resolved]
  - Confusional state [Unknown]
  - Gastrooesophageal reflux disease [Not Recovered/Not Resolved]
  - Productive cough [Not Recovered/Not Resolved]
  - Dysarthria [Recovered/Resolved]
  - Dysgraphia [Recovered/Resolved]
  - Memory impairment [Recovered/Resolved]
  - Mental impairment [Recovered/Resolved]
  - Dysphemia [Recovered/Resolved]

NARRATIVE: CASE EVENT DATE: 2010
